FAERS Safety Report 6150242-2 (Version None)
Quarter: 2009Q2

REPORT INFORMATION
  Report Type: 
  Country: None (occurrence: None)
  Receive Date: 20090407
  Receipt Date: 20090407
  Transmission Date: 20091009
  Serious: Yes (Other)
  Sender: FDA-Public Use
  Company Number: None

PATIENT
  Sex: Female
  Weight: 81.6475 kg

DRUGS (2)
  1. FLEXERIL [Suspect]
     Indication: MUSCLE RELAXANT THERAPY
     Dosage: 10 MG 1 TAB TID ORAL
     Route: 048
     Dates: start: 20090318
  2. NAPROXN [Suspect]
     Indication: ANTIINFLAMMATORY THERAPY
     Dosage: 500 MG 2 TABS BID ORAL
     Route: 048

REACTIONS (5)
  - EYE SWELLING [None]
  - FEELING ABNORMAL [None]
  - LIP SWELLING [None]
  - PRURITUS [None]
  - URTICARIA [None]
